FAERS Safety Report 8956323 (Version 1)
Quarter: 2012Q4

REPORT INFORMATION
  Report Type: 
  Country: US (occurrence: US)
  Receive Date: 20121210
  Receipt Date: 20121210
  Transmission Date: 20130627
  Serious: Yes (Hospitalization)
  Sender: FDA-Public Use
  Company Number: US-ELI_LILLY_AND_COMPANY-US201209000830

PATIENT
  Age: 73 Year
  Sex: Female

DRUGS (6)
  1. FORTEO [Suspect]
     Indication: OSTEOPOROSIS
     Dosage: UNK UNK, qd
  2. FORTEO [Suspect]
     Dosage: 20 ug, qd
     Dates: start: 20120827
  3. SYNTHROID [Concomitant]
  4. NEXIUM [Concomitant]
  5. CARDIA [Concomitant]
  6. KLOR-CON [Concomitant]

REACTIONS (10)
  - Musculoskeletal stiffness [Recovered/Resolved]
  - Spinal pain [Unknown]
  - Nerve injury [Unknown]
  - Pain in extremity [Unknown]
  - Coccydynia [Unknown]
  - Intentional drug misuse [Unknown]
  - Neck pain [Unknown]
  - Nausea [Recovered/Resolved]
  - Vomiting [Recovered/Resolved]
  - Malaise [Recovered/Resolved]
